FAERS Safety Report 4384856-7 (Version None)
Quarter: 2004Q2

REPORT INFORMATION
  Report Type: 
  Country: None (occurrence: None)
  Receive Date: 20040623
  Receipt Date: 20040617
  Transmission Date: 20050107
  Serious: Yes (Death)
  Sender: FDA-Public Use
  Company Number: 8236

PATIENT
  Age: 12 Year
  Sex: Male

DRUGS (1)
  1. CYTARABINE [Suspect]
     Indication: ACUTE MYELOID LEUKAEMIA

REACTIONS (14)
  - CARDIAC ARREST [None]
  - CLOSTRIDIAL INFECTION [None]
  - ECCHYMOSIS [None]
  - GAS GANGRENE [None]
  - HAEMORRHAGE [None]
  - LEG AMPUTATION [None]
  - MUSCLE NECROSIS [None]
  - NECROTISING FASCIITIS [None]
  - OEDEMA [None]
  - PAIN IN EXTREMITY [None]
  - PANCYTOPENIA [None]
  - PYREXIA [None]
  - SHOCK [None]
  - SWELLING [None]
